FAERS Safety Report 16715270 (Version 1)
Quarter: 2019Q3

REPORT INFORMATION
  Report Type: Report from Study
  Country: US (occurrence: US)
  Receive Date: 20190819
  Receipt Date: 20190819
  Transmission Date: 20191005
  Serious: Yes (Hospitalization)
  Sender: FDA-Public Use
  Company Number: US-TEVA-2019-US-1095689

PATIENT
  Sex: Female

DRUGS (1)
  1. COPAXONE [Suspect]
     Active Substance: GLATIRAMER ACETATE

REACTIONS (9)
  - Flushing [Unknown]
  - Diarrhoea [Unknown]
  - Vaginal haemorrhage [Unknown]
  - Injection site haemorrhage [Unknown]
  - Abdominal pain upper [Unknown]
  - Vomiting [Unknown]
  - Drug interaction [Unknown]
  - Swelling [Unknown]
  - Dyspnoea [Unknown]

NARRATIVE: CASE EVENT DATE: 2018
